FAERS Safety Report 6581771-5 (Version None)
Quarter: 2010Q1

REPORT INFORMATION
  Report Type: 
  Country: None (occurrence: None)
  Receive Date: 20100215
  Receipt Date: 20100204
  Transmission Date: 20100710
  Serious: Yes (Hospitalization)
  Sender: FDA-Public Use
  Company Number: PHEH2009US15471

PATIENT
  Sex: Female

DRUGS (8)
  1. EXJADE [Suspect]
     Indication: IRON OVERLOAD
     Dosage: 1500 MG, QD
     Route: 048
     Dates: start: 20080415
  2. ROBAXIN [Concomitant]
     Dosage: 500 UNK, QID, PRN
  3. PLAQUENIL [Concomitant]
     Dosage: 200 UNK, BID
  4. CORTISONE [Concomitant]
  5. FOLIC ACID [Concomitant]
     Dosage: 1 MG, UNK
  6. LORTAB [Concomitant]
     Dosage: 5/500 QID
  7. CLARITIN [Concomitant]
     Dosage: 10 UNK, UNK
  8. NEXIUM [Concomitant]
     Dosage: 40 UNK, UNK

REACTIONS (5)
  - ABDOMINAL DISCOMFORT [None]
  - ABDOMINAL PAIN [None]
  - DIARRHOEA [None]
  - DRUG INTOLERANCE [None]
  - GASTROINTESTINAL INFECTION [None]
